FAERS Safety Report 26204507 (Version 1)
Quarter: 2025Q4

REPORT INFORMATION
  Report Type: Spontaneous
  Country: US (occurrence: US)
  Receive Date: 20251227
  Receipt Date: 20251227
  Transmission Date: 20260118
  Serious: No
  Sender: SUNOVION
  Company Number: US-SUMITOMO PHARMA SWITZERLAND GMBH-2025SPA016667

PATIENT
  Sex: Male

DRUGS (1)
  1. ORGOVYX [Suspect]
     Active Substance: RELUGOLIX
     Indication: Prostate cancer
     Dosage: TOOK 3 PILLS FOR INITIAL DOSE
     Route: 048
     Dates: start: 20251201, end: 202512

REACTIONS (7)
  - Joint swelling [Unknown]
  - Arthritis [Unknown]
  - Gait disturbance [Unknown]
  - Sleep disorder [Unknown]
  - Hypokinesia [Unknown]
  - Pain in extremity [Unknown]
  - Arthralgia [Recovering/Resolving]

NARRATIVE: CASE EVENT DATE: 20251201
